FAERS Safety Report 25821555 (Version 1)
Quarter: 2025Q3

REPORT INFORMATION
  Report Type: Spontaneous
  Country: US (occurrence: US)
  Receive Date: 20250919
  Receipt Date: 20250919
  Transmission Date: 20251020
  Serious: No
  Sender: EMD SERONO INC
  Company Number: US-Merck Healthcare KGaA-2025047543

PATIENT
  Age: 41 Year
  Sex: Female

DRUGS (4)
  1. GONAL-F [Suspect]
     Active Substance: FOLLITROPIN
     Indication: Infertility
  2. MENOPUR [Concomitant]
     Active Substance: FOLLITROPIN\LUTEINIZING HORMONE
     Indication: Infertility
     Dosage: 75 IU VIAL MIX AND INJECT 225 IU (3 VIALS)
  3. PREGNYL [Concomitant]
     Active Substance: CHORIOGONADOTROPIN ALFA
     Indication: Infertility
  4. GANIRELIX [Concomitant]
     Active Substance: GANIRELIX
     Indication: Infertility
     Dosage: 250 MCG/0.5 ML, INJECT 250 MCG (0.5 ML) DAILY FOR 3 DAYS

REACTIONS (1)
  - Blood glucose increased [Unknown]

NARRATIVE: CASE EVENT DATE: 20250915
